FAERS Safety Report 4516713-7 (Version None)
Quarter: 2005Q1

REPORT INFORMATION
  Report Type: 
  Country: None (occurrence: None)
  Receive Date: 20041029
  Receipt Date: 20040722
  Transmission Date: 20050727
  Serious: No
  Sender: FDA-Public Use
  Company Number: 2004-119006-NL

PATIENT
  Age: 34 Year
  Sex: Female
  Weight: 53.6 kg

DRUGS (6)
  1. NUVARING [Suspect]
     Indication: CONTRACEPTION
     Dosage: DF DAILY VAGINAL
     Route: 067
     Dates: start: 20040101
  2. NATURE'S CHOICE VIT B [Concomitant]
  3. ULTRAVATE [Concomitant]
  4. DONOVEX [Concomitant]
  5. TERAZOL 7 [Concomitant]
  6. AMOXICILLIN [Concomitant]

REACTIONS (2)
  - DEVICE FAILURE [None]
  - VAGINAL MYCOSIS [None]
